FAERS Safety Report 7374689-1 (Version None)
Quarter: 2011Q1

REPORT INFORMATION
  Report Type: 
  Country: None (occurrence: None)
  Receive Date: 20110325
  Receipt Date: 20100831
  Transmission Date: 20110831
  Serious: No
  Sender: FDA-Public Use
  Company Number: US-MYLANLABS-2010S1013419

PATIENT
  Age: 54 None
  Sex: Male
  Weight: 127.01 kg

DRUGS (8)
  1. CYMBALTA [Concomitant]
  2. LISINOPRIL [Concomitant]
     Indication: BLOOD PRESSURE
  3. PERCOCET [Concomitant]
     Indication: BREAKTHROUGH PAIN
     Dosage: 10MG/325MG
     Route: 048
  4. FENTANYL-100 [Suspect]
     Indication: BACK PAIN
     Dosage: CHANGED PATCHES EVERY 3 DAYS THEN EVERY 2 DAYS ON AN UNKNOWN DATE.
     Route: 062
     Dates: start: 20090101
  5. IBUPROFEN [Concomitant]
     Indication: BACK PAIN
     Route: 048
  6. FENTANYL-100 [Suspect]
     Dosage: CHANGED Q. 48 HOURS.
     Route: 062
     Dates: start: 20100826
  7. MELATONIN [Concomitant]
     Indication: INSOMNIA
  8. SKELAXIN [Concomitant]
     Route: 048

REACTIONS (4)
  - DRUG WITHDRAWAL SYNDROME [None]
  - BACK PAIN [None]
  - DRUG EFFECT DECREASED [None]
  - INSOMNIA [None]
